FAERS Safety Report 19111862 (Version 1)
Quarter: 2021Q2

REPORT INFORMATION
  Report Type: Spontaneous
  Country: DK (occurrence: DK)
  Receive Date: 20210408
  Receipt Date: 20210408
  Transmission Date: 20210717
  Serious: Yes (Hospitalization)
  Sender: FDA-Public Use
  Company Number: DK-JNJFOC-20210408162

PATIENT
  Age: 79 Year
  Sex: Male
  Weight: 110 kg

DRUGS (7)
  1. TRIATEC [RAMIPRIL] [Concomitant]
     Active Substance: RAMIPRIL
     Indication: RENAL DISORDER
     Dosage: STRENGTH: 5 MG
     Route: 048
     Dates: start: 20151024
  2. PARACETAMOL SANDOZ [Concomitant]
     Active Substance: ACETAMINOPHEN
     Indication: PAIN
     Dosage: STRENGTH: 500 MG
     Route: 048
     Dates: start: 20160926, end: 20180215
  3. OXYNORM [Concomitant]
     Active Substance: OXYCODONE HYDROCHLORIDE
     Indication: PAIN
     Dosage: DOSAGE: MAXIMUM 15 MG DAILY. STRENGTH: 5 MG
     Route: 048
     Dates: start: 20160930, end: 20180313
  4. GABAMED [GABAPENTIN] [Concomitant]
     Indication: PHANTOM LIMB SYNDROME
     Dosage: DOSAGE: 300 MG 3 TIMES A DAY, 600 MG FOR THE NIGHT. STRENGTH: 300 MG
     Route: 048
     Dates: start: 20161101
  5. RIVAROXABAN [Suspect]
     Active Substance: RIVAROXABAN
     Indication: THROMBOSIS PROPHYLAXIS
     Dosage: STRENGTH: 15 MG
     Route: 048
     Dates: start: 20161124, end: 20200326
  6. FURIX [FUROSEMIDE] [Concomitant]
     Active Substance: FUROSEMIDE
     Indication: DIURETIC THERAPY
     Dosage: STRENGTH: 40 MG
     Route: 048
     Dates: start: 20111115
  7. DIPROSALIC [Concomitant]
     Active Substance: BETAMETHASONE DIPROPIONATE
     Indication: PSORIASIS
     Route: 003
     Dates: start: 20160518, end: 20180215

REACTIONS (1)
  - Haemoglobin decreased [Recovered/Resolved]

NARRATIVE: CASE EVENT DATE: 20161124
